FAERS Safety Report 8871816 (Version 1)
Quarter: 2012Q4

REPORT INFORMATION
  Report Type: 
  Country: US (occurrence: US)
  Receive Date: 20121026
  Receipt Date: 20121026
  Transmission Date: 20130627
  Serious: No
  Sender: FDA-Public Use
  Company Number: US-AMGEN-USASP2012048809

PATIENT
  Sex: Female

DRUGS (5)
  1. ENBREL [Suspect]
     Indication: PRODUCT USED FOR UNKNOWN INDICATION
     Dosage: 50 mg, qwk
     Route: 058
  2. CLOBETASOL 0.05% [Concomitant]
     Dosage: UNK
  3. PHILLIPS                           /00061602/ [Concomitant]
     Dosage: UNK
  4. MULTIVITAMINS, PLAIN [Concomitant]
     Dosage: UNK
  5. VITAMIN D /00107901/ [Concomitant]
     Dosage: High potency

REACTIONS (2)
  - Limb injury [Unknown]
  - Psoriasis [Unknown]
